FAERS Safety Report 8983726 (Version 1)
Quarter: 2012Q4

REPORT INFORMATION
  Report Type: 
  Country: US (occurrence: US)
  Receive Date: 20121224
  Receipt Date: 20121224
  Transmission Date: 20130627
  Serious: Yes (Death, Other)
  Sender: FDA-Public Use
  Company Number: US-ROCHE-1126313

PATIENT
  Age: 62 Year
  Sex: Female

DRUGS (9)
  1. AVASTIN [Suspect]
     Indication: BREAST CANCER FEMALE
     Route: 065
     Dates: start: 200601
  2. ADRIAMYCIN [Concomitant]
     Route: 065
  3. CYTOXAN [Concomitant]
     Route: 065
  4. TAXOL [Concomitant]
     Route: 065
  5. FEMARA [Concomitant]
     Route: 065
  6. ZOMETA [Concomitant]
     Route: 065
  7. FASLODEX [Concomitant]
     Route: 065
     Dates: start: 200601
  8. TAXOTERE [Concomitant]
     Route: 065
     Dates: start: 200601
  9. GEMZAR [Concomitant]
     Route: 065

REACTIONS (7)
  - Death [Fatal]
  - Neuropathy peripheral [Unknown]
  - Pain [Recovering/Resolving]
  - Pain [Unknown]
  - Fatigue [Unknown]
  - Fatigue [Unknown]
  - Depression [Unknown]
